FAERS Safety Report 23794971 (Version 5)
Quarter: 2025Q3

REPORT INFORMATION
  Report Type: Report from Study
  Country: BR (occurrence: BR)
  Receive Date: 20240429
  Receipt Date: 20250814
  Transmission Date: 20251020
  Serious: Yes (Death, Hospitalization, Other)
  Sender: NOVARTIS
  Company Number: BR-002147023-NVSC2024BR051561

PATIENT
  Age: 74 Year
  Sex: Female
  Weight: 73 kg

DRUGS (4)
  1. KISQALI [Suspect]
     Active Substance: RIBOCICLIB SUCCINATE
     Indication: Breast cancer metastatic
     Route: 065
  2. KISQALI [Suspect]
     Active Substance: RIBOCICLIB SUCCINATE
     Dosage: 3 DOSAGE FORM, 21D (THEN STOPPED AFTER 7)
     Route: 065
     Dates: end: 202505
  3. LETROZOLE [Suspect]
     Active Substance: LETROZOLE
     Indication: Product used for unknown indication
     Dosage: 1 DOSAGE FORM, QD
     Route: 065
     Dates: end: 202505
  4. EXEMESTANE [Suspect]
     Active Substance: EXEMESTANE
     Indication: Product used for unknown indication
     Route: 065
     Dates: start: 202505

REACTIONS (24)
  - Breast cancer metastatic [Fatal]
  - Malignant neoplasm progression [Fatal]
  - Diarrhoea [Recovered/Resolved]
  - Malaise [Recovered/Resolved]
  - Anaemia [Recovered/Resolved]
  - Metastases to lung [Not Recovered/Not Resolved]
  - Asthenia [Not Recovered/Not Resolved]
  - Drug ineffective [Not Recovered/Not Resolved]
  - Wound [Not Recovered/Not Resolved]
  - Tumour marker increased [Not Recovered/Not Resolved]
  - Anaemia [Not Recovered/Not Resolved]
  - Metastases to bone [Unknown]
  - Metastases to liver [Unknown]
  - Pulmonary oedema [Unknown]
  - Micturition disorder [Recovering/Resolving]
  - Dehydration [Recovered/Resolved]
  - Asthenia [Recovered/Resolved]
  - Decreased appetite [Recovering/Resolving]
  - Urinary tract infection [Recovering/Resolving]
  - Pallor [Recovering/Resolving]
  - Fatigue [Recovering/Resolving]
  - Wound infection [Unknown]
  - Blood iron abnormal [Unknown]
  - C-reactive protein increased [Unknown]

NARRATIVE: CASE EVENT DATE: 20240220
